FAERS Safety Report 4677225-3 (Version None)
Quarter: 2005Q2

REPORT INFORMATION
  Report Type: 
  Country: None (occurrence: None)
  Receive Date: 20050526
  Receipt Date: 20050511
  Transmission Date: 20051028
  Serious: Yes (Hospitalization)
  Sender: FDA-Public Use
  Company Number: EM2005-0239

PATIENT
  Sex: Female

DRUGS (6)
  1. PROLEUKIN [Suspect]
     Indication: RENAL CELL CARCINOMA STAGE UNSPECIFIED
     Dosage: 20  MU/KG, SUBCUTAN.
     Route: 058
     Dates: start: 20050427, end: 20050502
  2. INTERFERON ALFA (INTERFERON ALFA) [Suspect]
     Indication: RENAL CELL CARCINOMA STAGE UNSPECIFIED
     Dosage: 12 MU, SUBCUTAN.
     Route: 058
     Dates: start: 20050425, end: 20050502
  3. ACETAMINOPHEN [Concomitant]
  4. MAXOLON [Concomitant]
  5. ATORVASTATIN CALCIUM [Concomitant]
  6. ATENOLOL [Concomitant]

REACTIONS (6)
  - CONVULSION [None]
  - HEMIPLEGIA [None]
  - HYPOTHERMIA [None]
  - LOSS OF CONSCIOUSNESS [None]
  - PAIN [None]
  - PHOTOPHOBIA [None]
